FAERS Safety Report 5266064-0 (Version None)
Quarter: 2007Q1

REPORT INFORMATION
  Report Type: 
  Country: None (occurrence: None)
  Receive Date: 20070315
  Receipt Date: 20070302
  Transmission Date: 20070707
  Serious: Yes (Other)
  Sender: FDA-Public Use
  Company Number: PHBS2007JP04207

PATIENT
  Age: 63 Year
  Sex: Male

DRUGS (11)
  1. VOLTAREN [Suspect]
     Indication: EAR PAIN
     Route: 048
  2. TEGRETOL [Suspect]
     Indication: EAR PAIN
     Route: 048
  3. MECOBALAMIN [Concomitant]
     Route: 048
  4. VINPOCETINE [Concomitant]
     Route: 048
  5. CEFOZOPRAN HYDROCHLORIDE [Concomitant]
  6. VALACYCLOVIR HCL [Concomitant]
     Dosage: 3000 MG/DAY
     Route: 048
  7. CARBOCAIN [Concomitant]
     Dosage: 5 ML/DAY
     Route: 042
  8. CARBOCAIN [Concomitant]
     Dosage: 3 ML/DAY
     Route: 042
  9. AMITRIPTYLINE HYDROCHLORIDE [Concomitant]
  10. METHYLPREDNISOLONE 16MG TAB [Concomitant]
     Dosage: 250 MG/DAY
  11. NEUROTROPIN [Concomitant]
     Route: 048

REACTIONS (2)
  - GASTRIC ULCER [None]
  - NAUSEA [None]
